FAERS Safety Report 24076798 (Version 1)
Quarter: 2024Q3

REPORT INFORMATION
  Report Type: Spontaneous
  Country: US (occurrence: US)
  Receive Date: 20240711
  Receipt Date: 20240711
  Transmission Date: 20241016
  Serious: Yes (Hospitalization)
  Sender: BIOVITRUM
  Company Number: US-BIOVITRUM-2024-US-009680

PATIENT
  Age: 77 Year
  Sex: Male

DRUGS (2)
  1. VONJO [Suspect]
     Active Substance: PACRITINIB
     Indication: Myelofibrosis
     Dosage: TWICE DAILY (200MG IN THE MORNING AND 200MG IN THE EVENING)
     Route: 048
     Dates: start: 20240630
  2. LEVOTHYROXINE [Concomitant]
     Active Substance: LEVOTHYROXINE\LEVOTHYROXINE SODIUM
     Indication: Product used for unknown indication

REACTIONS (1)
  - Diarrhoea [Not Recovered/Not Resolved]
